FAERS Safety Report 5789274-2 (Version None)
Quarter: 2008Q2

REPORT INFORMATION
  Report Type: 
  Country: None (occurrence: None)
  Receive Date: 20080625
  Receipt Date: 20080625
  Transmission Date: 20081010
  Serious: Yes (Death, Hospitalization)
  Sender: FDA-Public Use
  Company Number: None

PATIENT
  Age: 58 Year
  Sex: Male
  Weight: 49.2 kg

DRUGS (11)
  1. WARFARIN SODIUM [Suspect]
     Indication: DEEP VEIN THROMBOSIS
     Dosage: 4MG DAILY PO/CHRONIC
     Route: 048
  2. CARVEDILOL [Concomitant]
  3. MEGESTROL ACETATE [Concomitant]
  4. METOCLOPRAMIDE [Concomitant]
  5. NEOSPORIN [Concomitant]
  6. OMEPRAZOLE [Concomitant]
  7. PERCOCET [Concomitant]
  8. NEPHROVITE [Concomitant]
  9. ASCORBIC ACID [Concomitant]
  10. ALBUTEROL [Concomitant]
  11. ZOLPIDEM [Concomitant]

REACTIONS (5)
  - CEREBRAL HAEMORRHAGE [None]
  - COAGULOPATHY [None]
  - HYPERTENSION [None]
  - INTRAVENTRICULAR HAEMORRHAGE [None]
  - MENTAL STATUS CHANGES [None]
